FAERS Safety Report 6308417-5 (Version None)
Quarter: 2009Q3

REPORT INFORMATION
  Report Type: 
  Country: None (occurrence: None)
  Receive Date: 20090813
  Receipt Date: 20090813
  Transmission Date: 20100115
  Serious: Yes (Other)
  Sender: FDA-Public Use
  Company Number: US-PFIZER INC-2009231489

PATIENT
  Sex: Female

DRUGS (3)
  1. LYRICA [Suspect]
     Indication: TRIGEMINAL NEURALGIA
     Dosage: 50 MG, 2X/DAY
  2. TEGRETOL [Concomitant]
  3. GABAPENTIN [Concomitant]

REACTIONS (2)
  - CARPAL TUNNEL SYNDROME [None]
  - DRUG WITHDRAWAL SYNDROME [None]
